FAERS Safety Report 9444108 (Version 1)
Quarter: 2013Q3

REPORT INFORMATION
  Report Type: Spontaneous
  Country: GB (occurrence: GB)
  Receive Date: 20130807
  Receipt Date: 20130807
  Transmission Date: 20140515
  Serious: Yes (Other)
  Sender: FDA-Public Use
  Company Number: GB-MYLANLABS-2013S1016507

PATIENT
  Age: 70 Year
  Sex: Female

DRUGS (2)
  1. CITALOPRAM [Suspect]
     Indication: STRESS
  2. EFEXOR [Suspect]
     Indication: MENTAL DISORDER

REACTIONS (5)
  - Activities of daily living impaired [Unknown]
  - Drug dependence [Unknown]
  - Feeling abnormal [Unknown]
  - Headache [Unknown]
  - Stress [Unknown]
